FAERS Safety Report 9239174 (Version 1)
Quarter: 2013Q2

REPORT INFORMATION
  Report Type: Spontaneous
  Country: JP (occurrence: JP)
  Receive Date: 20130418
  Receipt Date: 20130418
  Transmission Date: 20140414
  Serious: Yes (Other)
  Sender: FDA-Public Use
  Company Number: JP-ROCHE-1215047

PATIENT
  Sex: Male
  Weight: 2.45 kg

DRUGS (3)
  1. DORMICUM (INJ) [Suspect]
     Indication: FOETAL EXPOSURE DURING PREGNANCY
     Dosage: REGIMEN:1
     Route: 064
  2. DORMICUM (INJ) [Suspect]
     Dosage: REGIMEN:2
     Route: 063
  3. CERCINE [Concomitant]
     Indication: FOETAL EXPOSURE DURING PREGNANCY

REACTIONS (7)
  - Neonatal respiratory depression [Unknown]
  - Apgar score low [Unknown]
  - Exposure during breast feeding [Unknown]
  - Tachycardia foetal [None]
  - Caesarean section [None]
  - Low birth weight baby [None]
  - Maternal drugs affecting foetus [None]
